FAERS Safety Report 5486501-6 (Version None)
Quarter: 2007Q3

REPORT INFORMATION
  Report Type: 
  Country: None (occurrence: None)
  Receive Date: 20070919
  Receipt Date: 20070620
  Transmission Date: 20080115
  Serious: No
  Sender: FDA-Public Use
  Company Number: 2007RL000283

PATIENT
  Age: 64 Year
  Sex: Male

DRUGS (2)
  1. OMACOR [Suspect]
     Indication: DRUG USE FOR UNKNOWN INDICATION
     Dosage: 2 GM;QD;PO; 2 GM;QD;PO
     Route: 048
     Dates: start: 20060101, end: 20070501
  2. OMACOR [Suspect]
     Indication: DRUG USE FOR UNKNOWN INDICATION
     Dosage: 2 GM;QD;PO; 2 GM;QD;PO
     Route: 048
     Dates: start: 20070501, end: 20070501

REACTIONS (4)
  - NAUSEA [None]
  - STOMACH DISCOMFORT [None]
  - TREATMENT NONCOMPLIANCE [None]
  - VOMITING [None]
